FAERS Safety Report 15412485 (Version 1)
Quarter: 2018Q3

REPORT INFORMATION
  Report Type: Spontaneous
  Country: US (occurrence: US)
  Receive Date: 20180921
  Receipt Date: 20180921
  Transmission Date: 20181010
  Serious: No
  Sender: FDA-Public Use
  Company Number: US-SA-2018SA260148

PATIENT
  Sex: Female

DRUGS (8)
  1. METHOTREXATE. [Concomitant]
     Active Substance: METHOTREXATE
     Dosage: UNK UNK, UNK
     Route: 048
     Dates: start: 2008, end: 2017
  2. XELJANZ XR [Concomitant]
     Active Substance: TOFACITINIB CITRATE
     Dosage: 11 MG, UNK
     Route: 048
  3. PLAQUENIL [HYDROXYCHLOROQUINE SULFATE] [Concomitant]
     Dosage: UNK UNK, UNK
     Route: 065
     Dates: start: 2014, end: 2018
  4. ARAVA [Suspect]
     Active Substance: LEFLUNOMIDE
     Indication: RHEUMATOID ARTHRITIS
     Dosage: UNK, UNK
     Route: 065
     Dates: start: 2014, end: 2018
  5. HUMIRA [Concomitant]
     Active Substance: ADALIMUMAB
     Dosage: UNK UNK, UNK
     Route: 065
     Dates: start: 2008, end: 2018
  6. METHOTREXATE. [Concomitant]
     Active Substance: METHOTREXATE
     Dosage: UNK UNK, UNK
     Route: 065
     Dates: start: 2016
  7. ENBREL [Concomitant]
     Active Substance: ETANERCEPT
     Dosage: UNK UNK, UNK
     Route: 065
     Dates: start: 2008, end: 2018
  8. CIMZIA [Concomitant]
     Active Substance: CERTOLIZUMAB PEGOL
     Dosage: UNK UNK, UNK
     Route: 065
     Dates: start: 2008, end: 2018

REACTIONS (1)
  - Drug ineffective [Unknown]
